FAERS Safety Report 22294853 (Version 9)
Quarter: 2025Q1

REPORT INFORMATION
  Report Type: Spontaneous
  Country: US (occurrence: US)
  Receive Date: 20230508
  Receipt Date: 20250120
  Transmission Date: 20250408
  Serious: Yes (Other)
  Sender: PFIZER
  Company Number: US-PFIZER INC-PV202300081965

PATIENT
  Age: 47 Year
  Sex: Female

DRUGS (3)
  1. BRAFTOVI [Suspect]
     Active Substance: ENCORAFENIB
     Indication: Metastatic malignant melanoma
     Dosage: TAKE 3 CAPSULES. MAY TAKE WITH OR WITHOUT FOOD
     Route: 048
  2. MEKTOVI [Suspect]
     Active Substance: BINIMETINIB
     Indication: Metastatic malignant melanoma
     Dosage: TAKE 1 TABLET. MAY TAKE WITH OR WITHOUT FOOD
     Route: 048
  3. MEKTOVI [Suspect]
     Active Substance: BINIMETINIB
     Dosage: TAKE 2 TABLETS (30 MG)
     Route: 048

REACTIONS (6)
  - Joint injury [Unknown]
  - Tooth fracture [Unknown]
  - Impaired healing [Unknown]
  - Influenza [Unknown]
  - Illness [Unknown]
  - Off label use [Unknown]
